FAERS Safety Report 12471855 (Version 2)
Quarter: 2016Q3

REPORT INFORMATION
  Report Type: Report from Study
  Country: US (occurrence: US)
  Receive Date: 20160616
  Receipt Date: 20160812
  Transmission Date: 20161109
  Serious: Yes (Other)
  Sender: FDA-Public Use
  Company Number: US-JNJFOC-20160612258

PATIENT
  Sex: Female

DRUGS (1)
  1. IMBRUVICA [Suspect]
     Active Substance: IBRUTINIB
     Indication: CHRONIC LYMPHOCYTIC LEUKAEMIA
     Route: 048
     Dates: start: 20160107

REACTIONS (11)
  - Optic nerve injury [Not Recovered/Not Resolved]
  - Myalgia [Not Recovered/Not Resolved]
  - Gait disturbance [Not Recovered/Not Resolved]
  - Paraesthesia [Not Recovered/Not Resolved]
  - Intervertebral disc protrusion [Not Recovered/Not Resolved]
  - Balance disorder [Not Recovered/Not Resolved]
  - Hypoaesthesia [Not Recovered/Not Resolved]
  - Muscle spasms [Not Recovered/Not Resolved]
  - Asthenia [Not Recovered/Not Resolved]
  - Platelet count decreased [Not Recovered/Not Resolved]
  - Red blood cell count decreased [Not Recovered/Not Resolved]

NARRATIVE: CASE EVENT DATE: 2016
